FAERS Safety Report 16816457 (Version 1)
Quarter: 2019Q3

REPORT INFORMATION
  Report Type: Spontaneous
  Country: US (occurrence: US)
  Receive Date: 20190917
  Receipt Date: 20190917
  Transmission Date: 20191005
  Serious: No
  Sender: FDA-Public Use
  Company Number: US-MYLANLABS-2019M1081900

PATIENT
  Sex: Female

DRUGS (2)
  1. BETAMETHASONE VALERATE FOAM [Suspect]
     Active Substance: BETAMETHASONE VALERATE
     Indication: PSORIASIS
     Dosage: UNK, PRN
     Route: 064
  2. BETAMETHASONE VALERATE FOAM [Suspect]
     Active Substance: BETAMETHASONE VALERATE
     Dosage: UNK, PRN
     Route: 063

REACTIONS (2)
  - Exposure via breast milk [Not Recovered/Not Resolved]
  - Foetal exposure during pregnancy [Recovered/Resolved]
